FAERS Safety Report 6931615-4 (Version None)
Quarter: 2010Q3

REPORT INFORMATION
  Report Type: 
  Country: None (occurrence: None)
  Receive Date: 20100819
  Receipt Date: 20100813
  Transmission Date: 20110219
  Serious: Yes (Other)
  Sender: FDA-Public Use
  Company Number: US-SANOFI-AVENTIS-2010SA048690

PATIENT
  Age: 60 Year
  Sex: Female

DRUGS (3)
  1. LANTUS [Suspect]
     Dosage: 40/10/10 UNITS
     Route: 058
     Dates: start: 20100601
  2. SOLOSTAR [Suspect]
     Dosage: 40/10/10 UNITS
     Route: 058
     Dates: start: 20100601
  3. HUMALOG [Suspect]

REACTIONS (1)
  - BLINDNESS UNILATERAL [None]
